FAERS Safety Report 5798469-3 (Version None)
Quarter: 2008Q3

REPORT INFORMATION
  Report Type: 
  Country: None (occurrence: None)
  Receive Date: 20080702
  Receipt Date: 20080626
  Transmission Date: 20090109
  Serious: Yes (Other)
  Sender: FDA-Public Use
  Company Number: PHHY2008BR12464

PATIENT
  Sex: Male

DRUGS (1)
  1. RITALIN [Suspect]
     Dosage: 10 MG, 5 TABLET

REACTIONS (1)
  - BLOOD BILIRUBIN INCREASED [None]
